FAERS Safety Report 5853266-5 (Version None)
Quarter: 2008Q3

REPORT INFORMATION
  Report Type: 
  Country: None (occurrence: None)
  Receive Date: 20080820
  Receipt Date: 20080806
  Transmission Date: 20090109
  Serious: Yes (Hospitalization)
  Sender: FDA-Public Use
  Company Number: 15135

PATIENT
  Age: 51 Year
  Sex: Male

DRUGS (3)
  1. MORPHINE SULFATE [Suspect]
     Indication: PAIN
     Dosage: 30 MG QD; ORALLY
     Route: 048
     Dates: start: 20080519
  2. UNSPECIFIED ANTIDEPRESSANTS [Concomitant]
  3. UNSPECIFIED BLOOD PRESSURE MEDICATION [Concomitant]

REACTIONS (4)
  - FOAMING AT MOUTH [None]
  - LOSS OF CONSCIOUSNESS [None]
  - OVERDOSE [None]
  - PHARMACEUTICAL PRODUCT COMPLAINT [None]
